FAERS Safety Report 4977590-3 (Version None)
Quarter: 2006Q2

REPORT INFORMATION
  Report Type: 
  Country: None (occurrence: None)
  Receive Date: 20060414
  Receipt Date: 20060406
  Transmission Date: 20061013
  Serious: Yes (Other)
  Sender: FDA-Public Use
  Company Number: HQWYE690607APR06

PATIENT
  Sex: Female

DRUGS (1)
  1. CORDARONE [Suspect]
     Dates: start: 20051101

REACTIONS (2)
  - BUNDLE BRANCH BLOCK LEFT [None]
  - LEFT VENTRICULAR FAILURE [None]
